FAERS Safety Report 7311886-5 (Version None)
Quarter: 2011Q1

REPORT INFORMATION
  Report Type: 
  Country: None (occurrence: None)
  Receive Date: 20110224
  Receipt Date: 20110130
  Transmission Date: 20110831
  Serious: No
  Sender: FDA-Public Use
  Company Number: US-B.I. PHARMACEUTICALS,INC./RIDGEFIELD-2011-BP-03001BP

PATIENT
  Sex: Male

DRUGS (1)
  1. ZANTAC [Suspect]
     Route: 048
     Dates: start: 20110130, end: 20110130

REACTIONS (2)
  - VOMITING [None]
  - RETCHING [None]
